FAERS Safety Report 10636253 (Version 2)
Quarter: 2015Q1

REPORT INFORMATION
  Report Type: Report from Study
  Country: BR (occurrence: BR)
  Receive Date: 20141206
  Receipt Date: 20150220
  Transmission Date: 20150720
  Serious: Yes (Hospitalization, Other)
  Sender: FDA-Public Use
  Company Number: BR-ROCHE-1501847

PATIENT
  Sex: Female
  Weight: 66 kg

DRUGS (8)
  1. ALENIA (BRAZIL) [Concomitant]
     Active Substance: BUDESONIDE\FORMOTEROL FUMARATE
     Route: 065
     Dates: start: 201304
  2. SEROTONIN [Concomitant]
     Active Substance: SEROTONIN
  3. XOLAIR [Suspect]
     Active Substance: OMALIZUMAB
     Indication: ASTHMA
     Route: 058
     Dates: start: 20131126
  4. MONTELAIR [Concomitant]
     Active Substance: MONTELUKAST SODIUM
     Route: 065
     Dates: start: 201304
  5. KETOTIFEN FUMARATE. [Concomitant]
     Active Substance: KETOTIFEN FUMARATE
     Route: 065
     Dates: start: 201304
  6. ONBRIZE [Concomitant]
     Active Substance: INDACATEROL MALEATE
     Route: 065
     Dates: start: 201307
  7. SPIRIVA [Concomitant]
     Active Substance: TIOTROPIUM BROMIDE MONOHYDRATE
     Route: 065
     Dates: start: 201307
  8. XOLAIR [Suspect]
     Active Substance: OMALIZUMAB
     Route: 058
     Dates: start: 20150112

REACTIONS (7)
  - Somnolence [Unknown]
  - Malaise [Unknown]
  - Agitation [Not Recovered/Not Resolved]
  - Headache [Unknown]
  - Pneumonia [Unknown]
  - Asthmatic crisis [Not Recovered/Not Resolved]
  - Nausea [Unknown]
